FAERS Safety Report 8984740 (Version 2)
Quarter: 2013Q4

REPORT INFORMATION
  Report Type: Spontaneous
  Country: US (occurrence: US)
  Receive Date: 20121226
  Receipt Date: 20131203
  Transmission Date: 20140711
  Serious: Yes (Hospitalization)
  Sender: FDA-Public Use
  Company Number: US-BAYER-2012-134621

PATIENT
  Age: 49 Year
  Sex: Female
  Weight: 81.63 kg

DRUGS (25)
  1. YAZ [Suspect]
     Indication: MENOPAUSAL SYMPTOMS
     Dosage: UNK
     Dates: start: 201106
  2. GIANVI [Suspect]
     Dosage: UNK
     Dates: start: 20110628, end: 20110730
  3. LEXAPRO [Concomitant]
     Dosage: 20 MG, UNK
     Dates: start: 20110425
  4. LEXAPRO [Concomitant]
     Dosage: 20 MG, UNK
     Dates: start: 20110525
  5. LEXAPRO [Concomitant]
     Dosage: 20 MG, UNK
     Dates: start: 20110627
  6. TOPIRAMATE [Concomitant]
     Indication: MIGRAINE
     Dosage: 25 MG, UNK
     Dates: start: 20110416
  7. TOPIRAMATE [Concomitant]
     Indication: MIGRAINE
     Dosage: 25 MG, UNK
     Dates: start: 20110514
  8. TOPIRAMATE [Concomitant]
     Indication: MIGRAINE
     Dosage: 25 MG, UNK
     Dates: start: 20110617
  9. ZOLPIDEM [Concomitant]
     Dosage: 10 MG, UNK
     Dates: start: 20110426
  10. ZOLPIDEM [Concomitant]
     Dosage: 10 MG, UNK
     Dates: start: 20110523
  11. ZOLPIDEM [Concomitant]
     Dosage: 10 MG, UNK
     Dates: start: 20110627
  12. BONIVA [Concomitant]
     Dosage: 150 MG, UNK
     Dates: start: 20110515
  13. TIZANIDINE [Concomitant]
     Dosage: 4 MG, UNK
     Dates: start: 20110523
  14. DEXAMETHASONE [Concomitant]
     Dosage: 4 MG, UNK
     Dates: start: 20110611
  15. AMBIEN [Concomitant]
  16. TYLENOL #3 [Concomitant]
  17. ALBUTEROL [Concomitant]
  18. ALENDRONATE SODIUM [Concomitant]
  19. AUGMENTIN [Concomitant]
  20. BUPROPION [Concomitant]
  21. CYCLOBENZAPRINE [Concomitant]
  22. FLUTICASONE [Concomitant]
     Route: 045
  23. PREDNISONE [Concomitant]
  24. CORTISONE [Concomitant]
     Indication: NECK PAIN
  25. CALCIUM WITH VITAMIN D [Concomitant]

REACTIONS (8)
  - Pulmonary embolism [None]
  - Deep vein thrombosis [None]
  - Injury [None]
  - Pain [None]
  - Emotional distress [None]
  - General physical health deterioration [None]
  - Anxiety [None]
  - Pain [None]
